FAERS Safety Report 21934848 (Version 1)
Quarter: 2023Q1

REPORT INFORMATION
  Report Type: Spontaneous
  Country: MX (occurrence: MX)
  Receive Date: 20230201
  Receipt Date: 20230201
  Transmission Date: 20230417
  Serious: Yes (Other)
  Sender: FDA-Public Use
  Company Number: MX-AstraZeneca-2023A021336

PATIENT

DRUGS (3)
  1. ZOLADEX [Suspect]
     Active Substance: GOSERELIN ACETATE
     Indication: Breast cancer
     Dosage: 1 DOSAGE FORM EVERY THREE MONTHS
     Route: 058
  2. ZOLADEX [Suspect]
     Active Substance: GOSERELIN ACETATE
     Indication: Breast cancer
     Dosage: UNK
     Route: 065
  3. LETROZOLE [Concomitant]
     Active Substance: LETROZOLE
     Indication: Product used for unknown indication
     Dosage: 2.5 MILLIGRAM, QD
     Route: 048

REACTIONS (2)
  - Intra-abdominal haematoma [Recovered/Resolved]
  - Application site pain [Unknown]

NARRATIVE: CASE EVENT DATE: 20221013
